FAERS Safety Report 12618318 (Version 1)
Quarter: 2016Q3

REPORT INFORMATION
  Report Type: Spontaneous
  Country: CN (occurrence: CN)
  Receive Date: 20160803
  Receipt Date: 20160803
  Transmission Date: 20161109
  Serious: Yes (Other)
  Sender: FDA-Public Use
  Company Number: PHHY2016CN105980

PATIENT
  Age: 60 Year
  Sex: Female

DRUGS (1)
  1. EXELON [Suspect]
     Active Substance: RIVASTIGMINE TARTRATE
     Indication: PRODUCT USED FOR UNKNOWN INDICATION
     Route: 065

REACTIONS (4)
  - Decreased appetite [Not Recovered/Not Resolved]
  - Pain of skin [Not Recovered/Not Resolved]
  - Delirium [Not Recovered/Not Resolved]
  - Insomnia [Not Recovered/Not Resolved]
